FAERS Safety Report 18663464 (Version 2)
Quarter: 2021Q1

REPORT INFORMATION
  Report Type: Spontaneous
  Country: EE (occurrence: EE)
  Receive Date: 20201224
  Receipt Date: 20210112
  Transmission Date: 20210419
  Serious: Yes (Hospitalization, Other)
  Sender: FDA-Public Use
  Company Number: EE-BAUSCH-BL-2020-037380

PATIENT
  Age: 16 Year
  Sex: Male
  Weight: 132 kg

DRUGS (4)
  1. DOXYCYCLINE. [Suspect]
     Active Substance: DOXYCYCLINE
     Indication: ROSACEA
  2. DUPIXENT [Suspect]
     Active Substance: DUPILUMAB
     Indication: DERMATITIS ATOPIC
     Dosage: 300 MG, QOW
     Route: 058
     Dates: start: 20200813
  3. DICLOFENAC [Suspect]
     Active Substance: DICLOFENAC
     Indication: CHEST PAIN
     Dosage: 75 MG, EVERY 12 HOURS (BID)
     Route: 065
     Dates: start: 20201030, end: 20201119
  4. DOXYCYCLINE. [Suspect]
     Active Substance: DOXYCYCLINE
     Indication: LYME DISEASE
     Dosage: 100 MG, QD
     Route: 065
     Dates: start: 20201104

REACTIONS (8)
  - Infection [Unknown]
  - Non-cardiac chest pain [Recovering/Resolving]
  - Respiratory rate decreased [Recovering/Resolving]
  - Eosinophil count increased [Recovering/Resolving]
  - Pleural effusion [Recovering/Resolving]
  - Intercostal neuralgia [Unknown]
  - Respiratory distress [Recovering/Resolving]
  - Pleurisy [Recovering/Resolving]

NARRATIVE: CASE EVENT DATE: 2020
